FAERS Safety Report 5009569-X (Version None)
Quarter: 2006Q2

REPORT INFORMATION
  Report Type: 
  Country: None (occurrence: None)
  Receive Date: 20060522
  Receipt Date: 20060509
  Transmission Date: 20061013
  Serious: Yes (Hospitalization)
  Sender: FDA-Public Use
  Company Number: 2006062258

PATIENT

DRUGS (1)
  1. ZYVOX [Suspect]
     Indication: STAPHYLOCOCCAL INFECTION
     Dates: start: 20060101, end: 20060101

REACTIONS (2)
  - DISEASE RECURRENCE [None]
  - STAPHYLOCOCCAL INFECTION [None]
